FAERS Safety Report 15010824 (Version 1)
Quarter: 2018Q2

REPORT INFORMATION
  Report Type: Spontaneous
  Country: US (occurrence: US)
  Receive Date: 20180529
  Receipt Date: 20180529
  Transmission Date: 20180711
  Serious: Yes (Hospitalization, Other)
  Sender: FDA-Public Use
  Company Number: None

PATIENT
  Sex: Male

DRUGS (16)
  1. GENGRAF [Suspect]
     Active Substance: CYCLOSPORINE
     Indication: RENAL TRANSPLANT
     Dosage: ?          OTHER FREQUENCY:ALONG WITH 25 MG;?
     Route: 048
     Dates: start: 20120925
  2. NITROGLYCERN [Concomitant]
  3. CLOPIDOGREL [Concomitant]
     Active Substance: CLOPIDOGREL BISULFATE
  4. VITAMIN D [Concomitant]
     Active Substance: CHOLECALCIFEROL
  5. MULTI VIT [Concomitant]
  6. ASPIRIN. [Concomitant]
     Active Substance: ASPIRIN
  7. VITAMIN B12 [Concomitant]
     Active Substance: CYANOCOBALAMIN
  8. GENGRAF [Suspect]
     Active Substance: CYCLOSPORINE
     Indication: RENAL TRANSPLANT
     Dosage: ?          OTHER FREQUENCY:ALONG WITH 100 MG;?
     Route: 048
     Dates: start: 20120925
  9. PREDNISONE. [Concomitant]
     Active Substance: PREDNISONE
  10. CARVEDILOL. [Concomitant]
     Active Substance: CARVEDILOL
  11. PRAVASTATIN. [Concomitant]
     Active Substance: PRAVASTATIN
  12. TAMSULIN [Concomitant]
  13. HYDROCO/APAP [Concomitant]
     Active Substance: ACETAMINOPHEN\HYDROCODONE
  14. FISH OIL [Concomitant]
     Active Substance: FISH OIL
  15. CALCITRIOL. [Concomitant]
     Active Substance: CALCITRIOL
  16. FAMOTIDINE. [Concomitant]
     Active Substance: FAMOTIDINE

REACTIONS (1)
  - Myocardial infarction [None]
